FAERS Safety Report 20207837 (Version 2)
Quarter: 2021Q4

REPORT INFORMATION
  Report Type: Report from Study
  Country: NL (occurrence: NL)
  Receive Date: 20211220
  Receipt Date: 20211223
  Transmission Date: 20220303
  Serious: Yes (Death, Hospitalization, Other)
  Sender: FDA-Public Use
  Company Number: NL-ABBVIE-21K-114-4162194-00

PATIENT
  Sex: Male

DRUGS (9)
  1. AZACITIDINE [Suspect]
     Active Substance: AZACITIDINE
     Indication: Abnormal DNA methylation
     Dosage: 75 MILLIGRAM/SQ. METER, QD,DAY 1 TO 7
     Route: 065
     Dates: start: 20210525, end: 20210726
  2. AZACITIDINE [Suspect]
     Active Substance: AZACITIDINE
     Indication: Acute myeloid leukaemia
     Dosage: UNK
  3. VENETOCLAX [Suspect]
     Active Substance: VENETOCLAX
     Indication: Acute myeloid leukaemia
     Dosage: 200 MILLIGRAM, QD,DAY 2, CYCLE 1 AND 2
     Route: 048
     Dates: start: 20210526, end: 20210526
  4. VENETOCLAX [Suspect]
     Active Substance: VENETOCLAX
     Dosage: 100 MILLIGRAM, QD,DAY 1CYCLE 1 AND 2
     Route: 048
     Dates: start: 20210525, end: 20210525
  5. VENETOCLAX [Suspect]
     Active Substance: VENETOCLAX
     Dosage: 400 MILLIGRAM, QD, DAY 3 TO 28, CYCLE 1 AND 2
     Route: 048
     Dates: start: 20210527, end: 2021
  6. VENETOCLAX [Suspect]
     Active Substance: VENETOCLAX
     Dosage: 100 MILLIGRAM, QD (DAY 1CYCLE 1 AND 2)
     Dates: start: 20210721, end: 20210810
  7. VENETOCLAX [Suspect]
     Active Substance: VENETOCLAX
     Dosage: 400 MILLIGRAM (DAY 1 TO 28, CYCLE 1 AND 2)
     Route: 048
     Dates: start: 20210525, end: 20210623
  8. POSACONAZOLE [Concomitant]
     Active Substance: POSACONAZOLE
     Indication: Product used for unknown indication
     Dosage: UNK
     Dates: start: 20210721, end: 20210810
  9. CYCLOSPORINE [Concomitant]
     Active Substance: CYCLOSPORINE
     Indication: Product used for unknown indication
     Dosage: UNK

REACTIONS (8)
  - Haematotoxicity [Fatal]
  - Pyrexia [Fatal]
  - Bronchopulmonary aspergillosis [Not Recovered/Not Resolved]
  - Mediastinal mass [Not Recovered/Not Resolved]
  - Neutropenia [Not Recovered/Not Resolved]
  - Lung disorder [Not Recovered/Not Resolved]
  - Off label use [Unknown]
  - Febrile neutropenia [Not Recovered/Not Resolved]

NARRATIVE: CASE EVENT DATE: 20210101
